FAERS Safety Report 10089238 (Version 1)
Quarter: 2014Q2

REPORT INFORMATION
  Report Type: Other
  Country: GB (occurrence: GB)
  Receive Date: 20140421
  Receipt Date: 20140421
  Transmission Date: 20141212
  Serious: Yes (Death)
  Sender: FDA-Public Use
  Company Number: GB-TARO PHARMACEUTICALS U.S.A., INC-2014SUN00855

PATIENT
  Age: 51 Year
  Sex: Male

DRUGS (10)
  1. WARFARIN [Suspect]
     Indication: PULMONARY EMBOLISM
     Dosage: AS DIRECTED
     Route: 065
  2. ZAPONEX [Suspect]
     Indication: SCHIZOPHRENIA
     Dosage: 100MG IN MORNING AND 200MG IN NIGHT
     Route: 048
     Dates: start: 20100706, end: 20140124
  3. PREGABALIN [Concomitant]
     Dosage: 200 MG,BID
  4. ADCAL-D3 [Concomitant]
     Dosage: 5 MG, BID
  5. DILTIAZEM [Concomitant]
     Dosage: 60 MG, OD
  6. FLUOXETINE [Concomitant]
     Dosage: 20 MG IN THE MORNING
  7. FORTISIP COMPACT LIQUID [Concomitant]
  8. HYDROXOCOBALAMIN [Concomitant]
     Dosage: 1 ML AMPULE EVERY 3 MONTHS
  9. MESALAZINE [Concomitant]
     Dosage: 1 G, TID
  10. PREDNISOLONE [Concomitant]
     Dosage: 40 MG, OD

REACTIONS (3)
  - Gastrointestinal haemorrhage [Fatal]
  - Haemorrhagic diathesis [Fatal]
  - Head injury [Not Recovered/Not Resolved]
